FAERS Safety Report 18121622 (Version 2)
Quarter: 2020Q3

REPORT INFORMATION
  Report Type: Other
  Country: US (occurrence: US)
  Receive Date: 20200807
  Receipt Date: 20200818
  Transmission Date: 20201103
  Serious: Yes (Other)
  Sender: FDA-Public Use
  Company Number: US-ROCHE-2653714

PATIENT

DRUGS (4)
  1. DEXAMETHASONE. [Concomitant]
     Active Substance: DEXAMETHASONE
     Route: 048
  2. OFRANERGENE OBADENOVEC [Suspect]
     Active Substance: OFRANERGENE OBADENOVEC
     Indication: GLIOBLASTOMA MULTIFORME
     Route: 042
  3. BEVACIZUMAB. [Suspect]
     Active Substance: BEVACIZUMAB
     Indication: GLIOBLASTOMA MULTIFORME
     Route: 042
  4. ACETAMINOPHEN. [Concomitant]
     Active Substance: ACETAMINOPHEN

REACTIONS (14)
  - Musculoskeletal disorder [Unknown]
  - Nervous system disorder [Unknown]
  - Infection [Unknown]
  - Gastrointestinal disorder [Unknown]
  - Hypertension [Unknown]
  - Deep vein thrombosis [Unknown]
  - Connective tissue disorder [Unknown]
  - Seizure [Unknown]
  - Mental disorder [Unknown]
  - Acute kidney injury [Unknown]
  - Respiratory disorder [Unknown]
  - Hypertensive urgency [Unknown]
  - Angiopathy [Unknown]
  - Eye disorder [Unknown]
